FAERS Safety Report 15104718 (Version 1)
Quarter: 2018Q3

REPORT INFORMATION
  Report Type: Spontaneous
  Country: JP (occurrence: JP)
  Receive Date: 20180703
  Receipt Date: 20180703
  Transmission Date: 20181010
  Serious: Yes (Other)
  Sender: FDA-Public Use
  Company Number: JP-SA-2018SA165448

PATIENT
  Sex: Female

DRUGS (3)
  1. LEVOCETIRIZINE [Suspect]
     Active Substance: LEVOCETIRIZINE
     Indication: URTICARIA
     Dosage: UNK
     Route: 048
     Dates: end: 20180612
  2. LEVOCETIRIZINE [Suspect]
     Active Substance: LEVOCETIRIZINE
     Dosage: UNK
     Route: 048
     Dates: start: 2018, end: 20180612
  3. FEXOFENADINE HYDROCHLORIDE. [Concomitant]
     Active Substance: FEXOFENADINE HYDROCHLORIDE
     Dosage: UNK
     Dates: end: 2018

REACTIONS (7)
  - Sleep disorder [Unknown]
  - Irritability [Unknown]
  - Cystitis [Unknown]
  - Blood creatinine increased [Unknown]
  - Thirst [Unknown]
  - Pyelonephritis [Unknown]
  - Somnolence [Unknown]

NARRATIVE: CASE EVENT DATE: 2018
